FAERS Safety Report 5737445-3 (Version None)
Quarter: 2008Q2

REPORT INFORMATION
  Report Type: 
  Country: None (occurrence: None)
  Receive Date: 20080514
  Receipt Date: 20080306
  Transmission Date: 20081010
  Serious: Yes (Hospitalization)
  Sender: FDA-Public Use
  Company Number: US-BRISTOL-MYERS SQUIBB COMPANY-14107437

PATIENT
  Age: 6 Decade
  Sex: Female

DRUGS (1)
  1. IXEMPRA KIT [Suspect]
     Indication: BREAST CANCER
     Dosage: DOSE 1 (15 WEEKS AGO): 40MG/M2 DOSES 2-5: 32MG/M2

REACTIONS (1)
  - INFUSION RELATED REACTION [None]
